FAERS Safety Report 4569272-7 (Version None)
Quarter: 2005Q1

REPORT INFORMATION
  Report Type: 
  Country: None (occurrence: None)
  Receive Date: 20050203
  Receipt Date: 20050121
  Transmission Date: 20050727
  Serious: Yes (Hospitalization, Other)
  Sender: FDA-Public Use
  Company Number: US-GLAXOSMITHKLINE-A0541700A

PATIENT
  Age: 37 Year
  Sex: Female
  Weight: 55 kg

DRUGS (8)
  1. SENSODYNE-F [Suspect]
     Indication: SENSITIVITY OF TEETH
     Dates: start: 19600101, end: 20050120
  2. SENSODYNE EXTRA WHITENING TOOTHPASTE [Concomitant]
     Indication: SENSITIVITY OF TEETH
     Dates: start: 20050120
  3. HORMONE REPLACEMENT THERAPY [Concomitant]
     Indication: MENOPAUSAL SYMPTOMS
  4. VITAMIN B COMPLEX CAP [Concomitant]
     Indication: VITAMIN B COMPLEX DEFICIENCY
  5. VITAMIN C [Concomitant]
     Indication: VITAMIN SUPPLEMENTATION
  6. VITAMIN E [Concomitant]
     Indication: VITAMIN E
  7. CREST W/ FLUORIDE [Concomitant]
     Indication: DENTAL CARE
  8. SYNTHROID [Concomitant]
     Indication: HYPOTHYROIDISM
     Route: 048

REACTIONS (6)
  - BLADDER CANCER STAGE II [None]
  - DYSGEUSIA [None]
  - HYPOTHYROIDISM [None]
  - MALIGNANT NEOPLASM PROGRESSION [None]
  - MENORRHAGIA [None]
  - RED BLOOD CELLS URINE [None]
